FAERS Safety Report 9179949 (Version 1)
Quarter: 2013Q1

REPORT INFORMATION
  Report Type: Spontaneous
  Country: JP (occurrence: JP)
  Receive Date: 20130321
  Receipt Date: 20130321
  Transmission Date: 20140127
  Serious: Yes (Life-Threatening)
  Sender: FDA-Public Use
  Company Number: JP-AMGEN-JPNSP2013013340

PATIENT
  Age: 59 Year
  Sex: Male
  Weight: 60 kg

DRUGS (13)
  1. ENBREL [Suspect]
     Indication: RHEUMATOID ARTHRITIS
     Dosage: UNK
     Route: 058
     Dates: start: 201301, end: 201301
  2. ENBREL [Suspect]
     Dosage: 25 MG, UNK
     Route: 058
     Dates: start: 20130110, end: 20130131
  3. IGURATIMOD [Suspect]
     Indication: RHEUMATOID ARTHRITIS
     Dosage: 25 MG, 1X/DAY
     Route: 048
     Dates: start: 20121129
  4. PREDNISONE [Suspect]
     Dosage: 5 MG, UNK
     Route: 048
     Dates: start: 20121211, end: 20130116
  5. CELECOX [Concomitant]
     Indication: RHEUMATOID ARTHRITIS
     Dosage: 100 MG, 2X/DAY
     Route: 048
     Dates: start: 20121104
  6. MYONAL                             /00287502/ [Concomitant]
     Indication: RHEUMATOID ARTHRITIS
     Dosage: 50 MG, 2X/DAY
     Route: 048
     Dates: start: 20121109, end: 20130123
  7. METHYCOBAL [Concomitant]
     Indication: RHEUMATOID ARTHRITIS
     Dosage: 500 MG, 2X/DAY
     Route: 048
     Dates: start: 20121106
  8. MUCOSTA [Concomitant]
     Indication: GASTRITIS
     Dosage: 100 MG, 2X/DAY
     Route: 048
     Dates: start: 20121104
  9. NEXIUM                             /01479302/ [Concomitant]
     Indication: GASTRITIS
     Dosage: UNK
     Route: 048
     Dates: start: 20121220, end: 20130116
  10. PREDONINE                          /00016201/ [Concomitant]
     Indication: RHEUMATOID ARTHRITIS
     Dosage: 50 MG, 1X/DAY
     Route: 048
     Dates: start: 20121211, end: 20130116
  11. LYRICA [Concomitant]
     Indication: RHEUMATOID ARTHRITIS
     Dosage: 75 MG, 1X/DAY
     Route: 048
     Dates: start: 20121109, end: 20130116
  12. KAMIKIHITO [Concomitant]
     Dosage: 2.5 MG, TID
     Route: 048
     Dates: start: 20121227
  13. HERBAL EXTRACT NOS [Concomitant]
     Dosage: 2.5 MG, 3X/DAY
     Route: 048
     Dates: start: 20121227

REACTIONS (2)
  - Rash [Unknown]
  - Interstitial lung disease [Recovered/Resolved]
